FAERS Safety Report 5052641-9 (Version None)
Quarter: 2006Q3

REPORT INFORMATION
  Report Type: 
  Country: None (occurrence: None)
  Receive Date: 20060711
  Receipt Date: 20060626
  Transmission Date: 20061208
  Serious: Yes (Death)
  Sender: FDA-Public Use
  Company Number: 2006EN000136

PATIENT
  Age: 15 Year
  Sex: Female

DRUGS (2)
  1. ABELCET [Suspect]
     Indication: MUCORMYCOSIS
     Dosage: QD; IV
     Route: 042
  2. INSULIN [Concomitant]

REACTIONS (1)
  - BLOOD GLUCOSE INCREASED [None]
